FAERS Safety Report 9159298 (Version 1)
Quarter: 2013Q1

REPORT INFORMATION
  Report Type: Spontaneous
  Country: DK (occurrence: None)
  Receive Date: 20130213
  Receipt Date: 20130213
  Transmission Date: 20140127
  Serious: Yes (Hospitalization)
  Sender: FDA-Public Use
  Company Number: 2013P1002196

PATIENT
  Age: 74 Year
  Sex: Female

DRUGS (3)
  1. CEFUROXIME [Suspect]
     Indication: UROSEPSIS
     Route: 042
  2. DICLOXACILLIN SODIUM [Suspect]
     Indication: ENDOCARDITIS STAPHYLOCOCCAL
  3. RIFAMPICIN [Suspect]
     Indication: ENDOCARDITIS STAPHYLOCOCCAL

REACTIONS (5)
  - Endocarditis staphylococcal [None]
  - Vasculitis [None]
  - Cardiac valve vegetation [None]
  - Blood pressure systolic increased [None]
  - Hyperhidrosis [None]
